FAERS Safety Report 9024792 (Version 1)
Quarter: 2012Q4

REPORT INFORMATION
  Report Type: Spontaneous
  Country: US (occurrence: None)
  Receive Date: 20121231
  Receipt Date: 20121231
  Transmission Date: 20130627
  Serious: Yes (Other)
  Sender: FDA-Public Use
  Company Number: ADR-2012UNK104

PATIENT

DRUGS (5)
  1. STAVUDINE CAPSULES/ (UNKNOWN MANUFACTURER) [Suspect]
     Indication: ACQUIRED IMMUNE DEFICIENCY SYNDROME
  2. LAMIVUDINE [Concomitant]
  3. EFAVIRENZ [Concomitant]
  4. LAMIVUDINE [Concomitant]
  5. EFAVIRENZ [Concomitant]

REACTIONS (5)
  - Toxicity to various agents [None]
  - Lipodystrophy acquired [None]
  - Pancreatitis [None]
  - Lactic acidosis [None]
  - Neuropathy peripheral [None]
